FAERS Safety Report 17432600 (Version 2)
Quarter: 2020Q1

REPORT INFORMATION
  Report Type: Spontaneous
  Country: US (occurrence: US)
  Receive Date: 20200218
  Receipt Date: 20200303
  Transmission Date: 20200409
  Serious: Yes (Hospitalization, Other)
  Sender: FDA-Public Use
  Company Number: US-GLENMARK PHARMACEUTICALS-2020GMK046144

PATIENT

DRUGS (1)
  1. RANITIDINE TABLETS USP, 150 MG [Suspect]
     Active Substance: RANITIDINE HYDROCHLORIDE
     Indication: HYPERCHLORHYDRIA
     Dosage: 150 MG, BID
     Route: 048
     Dates: end: 201912

REACTIONS (9)
  - Gastric ulcer [Recovering/Resolving]
  - Gastrointestinal disorder [Unknown]
  - Condition aggravated [Unknown]
  - Feeling abnormal [Unknown]
  - Cholelithiasis [Recovered/Resolved]
  - Recalled product administered [Unknown]
  - Abdominal discomfort [Recovering/Resolving]
  - Decreased appetite [Recovering/Resolving]
  - Chest discomfort [Recovering/Resolving]

NARRATIVE: CASE EVENT DATE: 201910
